FAERS Safety Report 26175253 (Version 1)
Quarter: 2025Q4

REPORT INFORMATION
  Report Type: Spontaneous
  Country: EU (occurrence: None)
  Receive Date: 20251218
  Receipt Date: 20251218
  Transmission Date: 20260117
  Serious: Yes (Death)
  Sender: ENDO
  Company Number: EU-ENDO USA, INC.-2025-002432

PATIENT
  Age: 32 Year
  Sex: Female

DRUGS (5)
  1. KETALAR [Suspect]
     Active Substance: KETAMINE HYDROCHLORIDE
     Indication: Post-traumatic stress disorder
     Dosage: 0.5 MG/KG OVER 40 MIN, INFUSION
  2. KETALAR [Suspect]
     Active Substance: KETAMINE HYDROCHLORIDE
     Indication: Depression
  3. TRYPTOPHAN [Concomitant]
     Active Substance: TRYPTOPHAN
     Indication: Product used for unknown indication
     Dosage: UNK UNKNOWN, UNKNOWN
     Route: 065
  4. PROPRANOLOL [Concomitant]
     Active Substance: PROPRANOLOL HYDROCHLORIDE
     Indication: Product used for unknown indication
     Dosage: UNK UNKNOWN, UNKNOWN
     Route: 065
  5. ONDANSETRON [Concomitant]
     Active Substance: ONDANSETRON
     Indication: Product used for unknown indication
     Dosage: UNK UNKNOWN, UNKNOWN
     Route: 065

REACTIONS (2)
  - Methaemoglobinaemia [Fatal]
  - Off label use [Recovered/Resolved]
